FAERS Safety Report 6125013-3 (Version None)
Quarter: 2009Q1

REPORT INFORMATION
  Report Type: 
  Country: None (occurrence: None)
  Receive Date: 20090319
  Receipt Date: 20090318
  Transmission Date: 20090719
  Serious: Yes (Death, Hospitalization)
  Sender: FDA-Public Use
  Company Number: CZ-BRISTOL-MYERS SQUIBB COMPANY-14515704

PATIENT
  Age: 65 Year
  Sex: Female

DRUGS (4)
  1. ABILIFY [Suspect]
     Dosage: 15MG(0-1-0),PO,BEFORE HOSP'TION;10MG(1-0-0),PO,DURING HOSP'TION;RESTARTED FROM 13FEB09.
     Route: 048
     Dates: start: 20080901
  2. ABILIFY [Suspect]
     Indication: PSYCHOTIC DISORDER
     Dosage: 7 INJECTIONS,ABILIFY:SEP08,ORAL TO IM 13FEB09,IM ABILIFY 05FEB09
     Route: 030
     Dates: start: 20090205, end: 20090213
  3. VALPROATE SODIUM [Suspect]
  4. MIRTAZAPINE [Suspect]

REACTIONS (3)
  - ANXIETY [None]
  - COMPLETED SUICIDE [None]
  - PSYCHOTIC DISORDER [None]
